FAERS Safety Report 25897938 (Version 1)
Quarter: 2025Q4

REPORT INFORMATION
  Report Type: Spontaneous
  Country: JP (occurrence: JP)
  Receive Date: 20251008
  Receipt Date: 20251008
  Transmission Date: 20260117
  Serious: Yes (Hospitalization, Other)
  Sender: NOVARTIS
  Company Number: JP-Sandoz Group AG-00222211

PATIENT
  Age: 54 Year
  Sex: Male

DRUGS (1)
  1. CYCLOSPORINE [Suspect]
     Active Substance: CYCLOSPORINE
     Indication: Product used for unknown indication
     Dosage: UNK (CAPSULE)
     Route: 048

REACTIONS (2)
  - Renal impairment [Unknown]
  - Immunosuppressant drug level decreased [Unknown]
